FAERS Safety Report 7430469-X (Version None)
Quarter: 2011Q2

REPORT INFORMATION
  Report Type: 
  Country: None (occurrence: None)
  Receive Date: 20110421
  Receipt Date: 20101221
  Transmission Date: 20111010
  Serious: No
  Sender: FDA-Public Use
  Company Number: US-ASTRAZENECA-2009SE28821

PATIENT
  Age: 102 Year
  Sex: Female
  Weight: 43.1 kg

DRUGS (2)
  1. TOPROL-XL [Suspect]
     Indication: SYNCOPE
     Route: 048
  2. TOPROL-XL [Suspect]
     Indication: HYPERTENSION
     Route: 048

REACTIONS (4)
  - ALOPECIA [None]
  - DEHYDRATION [None]
  - THIRST DECREASED [None]
  - FATIGUE [None]
